FAERS Safety Report 7383342-X (Version None)
Quarter: 2011Q1

REPORT INFORMATION
  Report Type: 
  Country: None (occurrence: None)
  Receive Date: 20110325
  Receipt Date: 20110325
  Transmission Date: 20110831
  Serious: Yes (Hospitalization)
  Sender: FDA-Public Use
  Company Number: None

PATIENT
  Sex: Female

DRUGS (2)
  1. RECLAST [Suspect]
     Dates: start: 20080918
  2. VICODIN [Concomitant]

REACTIONS (11)
  - GAIT DISTURBANCE [None]
  - WHEELCHAIR USER [None]
  - THROMBOSIS [None]
  - EMOTIONAL DISORDER [None]
  - GASTROOESOPHAGEAL REFLUX DISEASE [None]
  - PNEUMONIA [None]
  - ECONOMIC PROBLEM [None]
  - FIBROMYALGIA [None]
  - ASTHMA [None]
  - CONDITION AGGRAVATED [None]
  - INFLUENZA [None]
